FAERS Safety Report 21290593 (Version 3)
Quarter: 2025Q4

REPORT INFORMATION
  Report Type: Spontaneous
  Country: EU (occurrence: EU)
  Receive Date: 20220903
  Receipt Date: 20251117
  Transmission Date: 20260117
  Serious: Yes (Hospitalization, Other)
  Sender: AUROBINDO
  Company Number: EU-SA-SAC20220817002411

PATIENT
  Age: 70 Year
  Sex: Female

DRUGS (1)
  1. LEVOFLOXACIN [Suspect]
     Active Substance: LEVOFLOXACIN
     Indication: Bronchitis
     Dosage: UNK
     Route: 065

REACTIONS (8)
  - SJS-TEN overlap [Recovered/Resolved]
  - Toxic epidermal necrolysis [Recovering/Resolving]
  - Anaemia [Recovering/Resolving]
  - Leukocytosis [Recovering/Resolving]
  - Klebsiella infection [Recovering/Resolving]
  - Urinary tract infection bacterial [Recovering/Resolving]
  - Staphylococcal infection [Recovering/Resolving]
  - Device related infection [Recovering/Resolving]
